FAERS Safety Report 22116271 (Version 1)
Quarter: 2023Q1

REPORT INFORMATION
  Report Type: Spontaneous
  Country: US (occurrence: US)
  Receive Date: 20230320
  Receipt Date: 20230320
  Transmission Date: 20230417
  Serious: Yes (Hospitalization, Other)
  Sender: FDA-Public Use
  Company Number: US-TORRENT-00012572

PATIENT
  Age: 63 Year
  Sex: Female

DRUGS (1)
  1. PANTOPRAZOLE [Suspect]
     Active Substance: PANTOPRAZOLE
     Indication: Eosinophilic oesophagitis
     Dosage: UNKNOWN
     Route: 042

REACTIONS (2)
  - Condition aggravated [Recovered/Resolved]
  - Eosinophilic myocarditis [Recovered/Resolved]
